FAERS Safety Report 9825703 (Version 1)
Quarter: 2013Q4

REPORT INFORMATION
  Report Type: Spontaneous
  Country: US (occurrence: None)
  Receive Date: 20131028
  Receipt Date: 20131028
  Transmission Date: 20140711
  Serious: Yes (Other)
  Sender: FDA-Public Use
  Company Number: 2013US001985

PATIENT
  Age: 29 Year
  Sex: Female

DRUGS (1)
  1. ICLUSIG [Suspect]
     Indication: CHRONIC MYELOID LEUKAEMIA
     Dosage: 45 MG, QD, ORAL
     Route: 048

REACTIONS (7)
  - Mobility decreased [None]
  - Pain [None]
  - Back pain [None]
  - Arthralgia [None]
  - Pain in extremity [None]
  - Nausea [None]
  - Vomiting [None]
